FAERS Safety Report 12390049 (Version 1)
Quarter: 2016Q2

REPORT INFORMATION
  Report Type: Spontaneous
  Country: US (occurrence: US)
  Receive Date: 20160520
  Receipt Date: 20160520
  Transmission Date: 20160815
  Serious: No
  Sender: FDA-Public Use
  Company Number: US-MDT-ADR-2015-02351

PATIENT
  Age: 54 Year
  Sex: Female

DRUGS (2)
  1. BACLOFEN. [Suspect]
     Active Substance: BACLOFEN
     Dosage: 5.5 MCG/DAY
     Route: 037
  2. HYDROMORPHONE [Suspect]
     Active Substance: HYDROMORPHONE
     Dosage: 0.110
     Route: 037

REACTIONS (2)
  - Arthralgia [Unknown]
  - Osteonecrosis [Unknown]

NARRATIVE: CASE EVENT DATE: 2014
